FAERS Safety Report 17178848 (Version 1)
Quarter: 2019Q4

REPORT INFORMATION
  Report Type: Spontaneous
  Country: US (occurrence: US)
  Receive Date: 20191219
  Receipt Date: 20191219
  Transmission Date: 20200122
  Serious: No
  Sender: FDA-Public Use
  Company Number: US-PFIZER INC-2019547014

PATIENT
  Age: 68 Year
  Sex: Female

DRUGS (3)
  1. CELEBREX [Concomitant]
     Active Substance: CELECOXIB
     Dosage: UNK
  2. XELJANZ XR [Suspect]
     Active Substance: TOFACITINIB CITRATE
     Indication: RHEUMATOID ARTHRITIS
     Dosage: 11 MG, DAILY
     Route: 048
     Dates: start: 20190731, end: 2019
  3. LEVOTHYROXINE SODIUM. [Concomitant]
     Active Substance: LEVOTHYROXINE SODIUM
     Dosage: UNK

REACTIONS (3)
  - Blood cholesterol increased [Unknown]
  - Gout [Unknown]
  - Chromaturia [Unknown]

NARRATIVE: CASE EVENT DATE: 2019
